FAERS Safety Report 15400143 (Version 1)
Quarter: 2018Q3

REPORT INFORMATION
  Report Type: Spontaneous
  Country: US (occurrence: US)
  Receive Date: 20180919
  Receipt Date: 20180919
  Transmission Date: 20181010
  Serious: No
  Sender: FDA-Public Use
  Company Number: US-BION-007206

PATIENT
  Sex: Male
  Weight: 98.88 kg

DRUGS (1)
  1. ZYRTEC [Suspect]
     Active Substance: CETIRIZINE HYDROCHLORIDE
     Indication: HYPERSENSITIVITY
     Dosage: 1 LIQUID GEL 3 TIMES
     Route: 048

REACTIONS (3)
  - Product substitution issue [Unknown]
  - Cough [Recovered/Resolved]
  - Incorrect dose administered [Not Recovered/Not Resolved]
